FAERS Safety Report 10343417 (Version 1)
Quarter: 2014Q3

REPORT INFORMATION
  Report Type: Spontaneous
  Country: CO (occurrence: None)
  Receive Date: 20140723
  Receipt Date: 20140723
  Transmission Date: 20150326
  Serious: Yes (Other)
  Sender: FDA-Public Use
  Company Number: 2014-19999

PATIENT
  Age: 68 Year
  Sex: Male

DRUGS (2)
  1. EYLEA [Suspect]
     Active Substance: AFLIBERCEPT
     Indication: AGE-RELATED MACULAR DEGENERATION
     Dosage: 2 INJECTIONS
     Dates: start: 20130702, end: 20130802
  2. EYLEA [Suspect]
     Active Substance: AFLIBERCEPT
     Indication: VENOUS OCCLUSION
     Dosage: 2 INJECTIONS
     Dates: start: 20130702, end: 20130802

REACTIONS (2)
  - Blindness unilateral [None]
  - Drug ineffective [None]
